FAERS Safety Report 7249793-9 (Version None)
Quarter: 2011Q1

REPORT INFORMATION
  Report Type: 
  Country: None (occurrence: None)
  Receive Date: 20110128
  Receipt Date: 20100819
  Transmission Date: 20110831
  Serious: Yes (Other)
  Sender: FDA-Public Use
  Company Number: A0852944A

PATIENT
  Age: 33 Year
  Sex: Female

DRUGS (2)
  1. WELLBUTRIN XL [Suspect]
     Indication: POST-TRAUMATIC STRESS DISORDER
     Dosage: 150MG PER DAY
     Route: 048
     Dates: start: 20100107, end: 20100101
  2. NO CONCURRENT MEDICATIONS [Concomitant]

REACTIONS (1)
  - RASH [None]
